FAERS Safety Report 8304240-0 (Version None)
Quarter: 2012Q2

REPORT INFORMATION
  Report Type: 
  Country: None (occurrence: None)
  Receive Date: 20120423
  Receipt Date: 20120413
  Transmission Date: 20120825
  Serious: Yes (Other)
  Sender: FDA-Public Use
  Company Number: US-ASTRAZENECA-2012SE24653

PATIENT
  Age: 75 Year
  Sex: Male

DRUGS (3)
  1. PRAVACHOL [Concomitant]
  2. RHINOCORT [Suspect]
     Route: 045
  3. NEXIUM [Suspect]
     Route: 048

REACTIONS (1)
  - RENAL FAILURE [None]
